FAERS Safety Report 25547412 (Version 3)
Quarter: 2025Q3

REPORT INFORMATION
  Report Type: Spontaneous
  Country: CA (occurrence: CA)
  Receive Date: 20250714
  Receipt Date: 20250915
  Transmission Date: 20251021
  Serious: Yes (Death, Life-Threatening, Hospitalization, Disabling, Congenital Anomaly, Other)
  Sender: CELLTRION
  Company Number: CA-HALEON-2219019

PATIENT

DRUGS (639)
  1. INFLIXIMAB [Suspect]
     Active Substance: INFLIXIMAB
     Indication: Rheumatoid arthritis
     Route: 065
  2. INFLIXIMAB [Suspect]
     Active Substance: INFLIXIMAB
     Route: 065
  3. INFLIXIMAB [Suspect]
     Active Substance: INFLIXIMAB
     Route: 065
  4. INFLIXIMAB [Suspect]
     Active Substance: INFLIXIMAB
     Route: 065
  5. INFLIXIMAB [Suspect]
     Active Substance: INFLIXIMAB
     Route: 065
  6. ADALIMUMAB [Suspect]
     Active Substance: ADALIMUMAB
     Indication: Rheumatoid arthritis
     Route: 058
  7. ADALIMUMAB [Suspect]
     Active Substance: ADALIMUMAB
     Route: 058
  8. ADALIMUMAB [Suspect]
     Active Substance: ADALIMUMAB
     Route: 058
  9. ADALIMUMAB [Suspect]
     Active Substance: ADALIMUMAB
  10. RITUXIMAB [Suspect]
     Active Substance: RITUXIMAB
     Indication: Rheumatoid arthritis
     Route: 065
  11. RITUXIMAB [Suspect]
     Active Substance: RITUXIMAB
     Route: 065
  12. RITUXIMAB [Suspect]
     Active Substance: RITUXIMAB
     Route: 043
  13. RITUXIMAB [Suspect]
     Active Substance: RITUXIMAB
     Route: 065
  14. RITUXIMAB [Suspect]
     Active Substance: RITUXIMAB
     Route: 065
  15. RITUXIMAB [Suspect]
     Active Substance: RITUXIMAB
     Route: 065
  16. RITUXIMAB [Suspect]
     Active Substance: RITUXIMAB
     Route: 065
  17. RITUXIMAB [Suspect]
     Active Substance: RITUXIMAB
     Route: 016
  18. RITUXIMAB [Suspect]
     Active Substance: RITUXIMAB
     Route: 016
  19. RITUXIMAB [Suspect]
     Active Substance: RITUXIMAB
     Route: 016
  20. RITUXIMAB [Suspect]
     Active Substance: RITUXIMAB
     Route: 058
  21. RITUXIMAB [Suspect]
     Active Substance: RITUXIMAB
     Route: 016
  22. RITUXIMAB [Suspect]
     Active Substance: RITUXIMAB
     Route: 016
  23. RITUXIMAB [Suspect]
     Active Substance: RITUXIMAB
     Route: 042
  24. RITUXIMAB [Suspect]
     Active Substance: RITUXIMAB
     Route: 065
  25. RITUXIMAB [Suspect]
     Active Substance: RITUXIMAB
     Route: 043
  26. RITUXIMAB [Suspect]
     Active Substance: RITUXIMAB
  27. RITUXIMAB [Suspect]
     Active Substance: RITUXIMAB
     Route: 065
  28. RITUXIMAB [Suspect]
     Active Substance: RITUXIMAB
     Route: 065
  29. RITUXIMAB [Suspect]
     Active Substance: RITUXIMAB
     Route: 065
  30. RITUXIMAB [Suspect]
     Active Substance: RITUXIMAB
     Route: 043
  31. RITUXIMAB [Suspect]
     Active Substance: RITUXIMAB
     Route: 042
  32. RITUXIMAB [Suspect]
     Active Substance: RITUXIMAB
  33. RITUXIMAB [Suspect]
     Active Substance: RITUXIMAB
     Route: 042
  34. RITUXIMAB [Suspect]
     Active Substance: RITUXIMAB
     Route: 042
  35. RITUXIMAB [Suspect]
     Active Substance: RITUXIMAB
     Route: 065
  36. RITUXIMAB [Suspect]
     Active Substance: RITUXIMAB
     Route: 065
  37. RITUXIMAB [Suspect]
     Active Substance: RITUXIMAB
     Route: 042
  38. RITUXIMAB [Suspect]
     Active Substance: RITUXIMAB
     Route: 042
  39. RITUXIMAB [Suspect]
     Active Substance: RITUXIMAB
     Route: 016
  40. RITUXIMAB [Suspect]
     Active Substance: RITUXIMAB
     Route: 065
  41. RITUXIMAB [Suspect]
     Active Substance: RITUXIMAB
     Route: 065
  42. RITUXIMAB [Suspect]
     Active Substance: RITUXIMAB
     Route: 065
  43. RITUXIMAB [Suspect]
     Active Substance: RITUXIMAB
     Route: 065
  44. RITUXIMAB [Suspect]
     Active Substance: RITUXIMAB
     Route: 042
  45. RITUXIMAB [Suspect]
     Active Substance: RITUXIMAB
     Route: 042
  46. RITUXIMAB [Suspect]
     Active Substance: RITUXIMAB
     Route: 016
  47. RITUXIMAB [Suspect]
     Active Substance: RITUXIMAB
     Route: 042
  48. ENBREL [Suspect]
     Active Substance: ETANERCEPT
     Indication: Rheumatoid arthritis
     Route: 058
  49. ENBREL [Suspect]
     Active Substance: ETANERCEPT
     Dosage: 10 MG, QW (1 EVERY 1 WEEKS)
     Route: 065
  50. ENBREL [Suspect]
     Active Substance: ETANERCEPT
     Route: 058
  51. ENBREL [Suspect]
     Active Substance: ETANERCEPT
     Route: 058
  52. ENBREL [Suspect]
     Active Substance: ETANERCEPT
     Route: 058
  53. ENBREL [Suspect]
     Active Substance: ETANERCEPT
     Route: 058
  54. ENBREL [Suspect]
     Active Substance: ETANERCEPT
     Route: 058
  55. ENBREL [Suspect]
     Active Substance: ETANERCEPT
     Route: 058
  56. ENBREL [Suspect]
     Active Substance: ETANERCEPT
     Route: 065
  57. ENBREL [Suspect]
     Active Substance: ETANERCEPT
     Route: 065
  58. ENBREL [Suspect]
     Active Substance: ETANERCEPT
     Route: 058
  59. ENBREL [Suspect]
     Active Substance: ETANERCEPT
     Dosage: 50 MG, QW (1 EVERY 1 WEEKS)
     Route: 065
  60. ENBREL [Suspect]
     Active Substance: ETANERCEPT
     Route: 058
  61. ENBREL [Suspect]
     Active Substance: ETANERCEPT
     Route: 058
  62. METHOTREXATE [Suspect]
     Active Substance: METHOTREXATE
     Indication: Rheumatoid arthritis
     Route: 013
  63. METHOTREXATE [Suspect]
     Active Substance: METHOTREXATE
     Route: 065
  64. METHOTREXATE [Suspect]
     Active Substance: METHOTREXATE
     Route: 065
  65. METHOTREXATE [Suspect]
     Active Substance: METHOTREXATE
     Dosage: 20 MG, QW (1 EVERY 1 WEEK)
     Route: 058
  66. METHOTREXATE [Suspect]
     Active Substance: METHOTREXATE
     Dosage: 25 MG, QW (1 EVERY 1 WEEK)
     Route: 013
  67. METHOTREXATE [Suspect]
     Active Substance: METHOTREXATE
     Route: 065
  68. METHOTREXATE [Suspect]
     Active Substance: METHOTREXATE
     Dosage: 15 MG, QW (1 EVERY 1 WEEK)
     Route: 058
  69. METHOTREXATE [Suspect]
     Active Substance: METHOTREXATE
     Dosage: 25 MG, QW
     Route: 065
  70. METHOTREXATE [Suspect]
     Active Substance: METHOTREXATE
     Route: 065
  71. METHOTREXATE [Suspect]
     Active Substance: METHOTREXATE
     Route: 016
  72. METHOTREXATE [Suspect]
     Active Substance: METHOTREXATE
     Route: 065
  73. METHOTREXATE [Suspect]
     Active Substance: METHOTREXATE
     Dosage: 25 MG, QW (1 EVERY 1 WEEK)
     Route: 065
  74. METHOTREXATE [Suspect]
     Active Substance: METHOTREXATE
     Route: 013
  75. METHOTREXATE [Suspect]
     Active Substance: METHOTREXATE
     Route: 065
  76. METHOTREXATE [Suspect]
     Active Substance: METHOTREXATE
     Dosage: 20 MG, QW (1 EVERY 1 WEEK)
     Route: 058
  77. METHOTREXATE [Suspect]
     Active Substance: METHOTREXATE
     Dosage: 25 MG, QW (1 EVERY 1 WEEK)
     Route: 013
  78. METHOTREXATE [Suspect]
     Active Substance: METHOTREXATE
     Route: 065
  79. METHOTREXATE [Suspect]
     Active Substance: METHOTREXATE
     Dosage: 15 MG, QW (1 EVERY 1 WEEK)
     Route: 058
  80. METHOTREXATE [Suspect]
     Active Substance: METHOTREXATE
     Dosage: 25 MG, QW
     Route: 065
  81. METHOTREXATE [Suspect]
     Active Substance: METHOTREXATE
     Route: 065
  82. METHOTREXATE [Suspect]
     Active Substance: METHOTREXATE
     Route: 016
  83. METHOTREXATE [Suspect]
     Active Substance: METHOTREXATE
     Route: 065
  84. METHOTREXATE [Suspect]
     Active Substance: METHOTREXATE
     Dosage: 25 MG, QW (1 EVERY 1 WEEK)
     Route: 065
  85. METHOTREXATE [Suspect]
     Active Substance: METHOTREXATE
     Route: 065
  86. METHOTREXATE [Suspect]
     Active Substance: METHOTREXATE
     Indication: Rheumatoid arthritis
     Route: 048
  87. METHOTREXATE [Suspect]
     Active Substance: METHOTREXATE
     Dosage: 20 MG, QW (1 EVERY 1 WEEK)
     Route: 048
  88. METHOTREXATE [Suspect]
     Active Substance: METHOTREXATE
     Dosage: 40 MG, QW (1 EVERY 1 WEEK)
     Route: 048
  89. METHOTREXATE [Suspect]
     Active Substance: METHOTREXATE
     Route: 048
  90. METHOTREXATE [Suspect]
     Active Substance: METHOTREXATE
     Route: 048
  91. METHOTREXATE [Suspect]
     Active Substance: METHOTREXATE
     Route: 048
  92. METHOTREXATE [Suspect]
     Active Substance: METHOTREXATE
     Route: 048
  93. METHOTREXATE [Suspect]
     Active Substance: METHOTREXATE
     Route: 048
  94. METHOTREXATE [Suspect]
     Active Substance: METHOTREXATE
     Dosage: 25 MG, QW (1 EVERY 1 WEEK)
     Route: 048
  95. METHOTREXATE [Suspect]
     Active Substance: METHOTREXATE
     Dosage: 50 MG, QW (1 EVERY 1 WEEK)
     Route: 048
  96. METHOTREXATE [Suspect]
     Active Substance: METHOTREXATE
     Route: 048
  97. METHOTREXATE [Suspect]
     Active Substance: METHOTREXATE
     Route: 048
  98. METHOTREXATE [Suspect]
     Active Substance: METHOTREXATE
     Dosage: 20 MG, QW (1 EVERY 1 WEEK)
     Route: 048
  99. METHOTREXATE [Suspect]
     Active Substance: METHOTREXATE
     Dosage: 40 MG, QW (1 EVERY 1 WEEK)
     Route: 048
  100. METHOTREXATE [Suspect]
     Active Substance: METHOTREXATE
     Route: 048
  101. METHOTREXATE [Suspect]
     Active Substance: METHOTREXATE
     Route: 048
  102. METHOTREXATE [Suspect]
     Active Substance: METHOTREXATE
     Route: 048
  103. METHOTREXATE [Suspect]
     Active Substance: METHOTREXATE
     Route: 048
  104. METHOTREXATE [Suspect]
     Active Substance: METHOTREXATE
  105. METHOTREXATE [Suspect]
     Active Substance: METHOTREXATE
     Dosage: 25 MG, QW (1 EVERY 1 WEEK)
     Route: 048
  106. METHOTREXATE [Suspect]
     Active Substance: METHOTREXATE
     Dosage: 50 MG, QW (1 EVERY 1 WEEKS)
     Route: 048
  107. METHOTREXATE [Suspect]
     Active Substance: METHOTREXATE
     Route: 048
  108. METHOTREXATE [Suspect]
     Active Substance: METHOTREXATE
     Route: 048
  109. METHYLPREDNISOLONE [Suspect]
     Active Substance: METHYLPREDNISOLONE
     Indication: Rheumatoid arthritis
     Route: 065
  110. METHYLPREDNISOLONE [Suspect]
     Active Substance: METHYLPREDNISOLONE
     Route: 065
  111. SULFASALAZINE [Suspect]
     Active Substance: SULFASALAZINE
     Indication: Rheumatoid arthritis
     Route: 058
  112. SULFASALAZINE [Suspect]
     Active Substance: SULFASALAZINE
     Route: 065
  113. SULFASALAZINE [Suspect]
     Active Substance: SULFASALAZINE
     Route: 065
  114. SULFASALAZINE [Suspect]
     Active Substance: SULFASALAZINE
     Route: 058
  115. SULFASALAZINE [Suspect]
     Active Substance: SULFASALAZINE
     Route: 065
  116. SULFASALAZINE [Suspect]
     Active Substance: SULFASALAZINE
     Route: 065
  117. SULFASALAZINE [Suspect]
     Active Substance: SULFASALAZINE
     Route: 065
  118. SULFASALAZINE [Suspect]
     Active Substance: SULFASALAZINE
     Route: 065
  119. SULFASALAZINE [Suspect]
     Active Substance: SULFASALAZINE
     Route: 065
  120. SULFASALAZINE [Suspect]
     Active Substance: SULFASALAZINE
     Route: 058
  121. SULFASALAZINE [Suspect]
     Active Substance: SULFASALAZINE
     Route: 058
  122. SULFASALAZINE [Suspect]
     Active Substance: SULFASALAZINE
     Route: 065
  123. SULFASALAZINE [Suspect]
     Active Substance: SULFASALAZINE
     Route: 058
  124. SULFASALAZINE [Suspect]
     Active Substance: SULFASALAZINE
     Route: 065
  125. SULFASALAZINE [Suspect]
     Active Substance: SULFASALAZINE
     Route: 065
  126. SULFASALAZINE [Suspect]
     Active Substance: SULFASALAZINE
     Route: 065
  127. SULFASALAZINE [Suspect]
     Active Substance: SULFASALAZINE
     Route: 016
  128. SULFASALAZINE [Suspect]
     Active Substance: SULFASALAZINE
     Route: 065
  129. SULFASALAZINE [Suspect]
     Active Substance: SULFASALAZINE
     Route: 058
  130. SULFASALAZINE [Suspect]
     Active Substance: SULFASALAZINE
     Indication: Rheumatoid arthritis
     Route: 048
  131. SULFASALAZINE [Suspect]
     Active Substance: SULFASALAZINE
     Route: 048
  132. SULFASALAZINE [Suspect]
     Active Substance: SULFASALAZINE
     Route: 048
  133. SULFASALAZINE [Suspect]
     Active Substance: SULFASALAZINE
     Route: 048
  134. SULFASALAZINE [Suspect]
     Active Substance: SULFASALAZINE
     Route: 048
  135. SULFASALAZINE [Suspect]
     Active Substance: SULFASALAZINE
     Route: 048
  136. SULFASALAZINE [Suspect]
     Active Substance: SULFASALAZINE
     Route: 065
  137. XELJANZ [Suspect]
     Active Substance: TOFACITINIB CITRATE
     Indication: Rheumatoid arthritis
     Route: 065
  138. XELJANZ [Suspect]
     Active Substance: TOFACITINIB CITRATE
     Route: 065
  139. XELJANZ [Suspect]
     Active Substance: TOFACITINIB CITRATE
     Route: 065
  140. XELJANZ [Suspect]
     Active Substance: TOFACITINIB CITRATE
     Route: 065
  141. XELJANZ [Suspect]
     Active Substance: TOFACITINIB CITRATE
     Route: 048
  142. XELJANZ [Suspect]
     Active Substance: TOFACITINIB CITRATE
     Route: 048
  143. XELJANZ [Suspect]
     Active Substance: TOFACITINIB CITRATE
     Route: 048
  144. XELJANZ [Suspect]
     Active Substance: TOFACITINIB CITRATE
     Route: 048
  145. XELJANZ [Suspect]
     Active Substance: TOFACITINIB CITRATE
     Route: 065
  146. XELJANZ [Suspect]
     Active Substance: TOFACITINIB CITRATE
     Route: 065
  147. XELJANZ [Suspect]
     Active Substance: TOFACITINIB CITRATE
     Route: 065
  148. XELJANZ [Suspect]
     Active Substance: TOFACITINIB CITRATE
     Route: 048
  149. XELJANZ [Suspect]
     Active Substance: TOFACITINIB CITRATE
     Route: 065
  150. XELJANZ [Suspect]
     Active Substance: TOFACITINIB CITRATE
     Route: 048
  151. XELJANZ [Suspect]
     Active Substance: TOFACITINIB CITRATE
     Route: 048
  152. XELJANZ [Suspect]
     Active Substance: TOFACITINIB CITRATE
     Route: 065
  153. XELJANZ [Suspect]
     Active Substance: TOFACITINIB CITRATE
     Route: 065
  154. METHYLPREDNISOLONE SODIUM SUCCINATE [Suspect]
     Active Substance: METHYLPREDNISOLONE SODIUM SUCCINATE
     Indication: Rheumatoid arthritis
     Route: 065
  155. METHYLPREDNISOLONE SODIUM SUCCINATE [Suspect]
     Active Substance: METHYLPREDNISOLONE SODIUM SUCCINATE
     Route: 065
  156. AIMOVIG [Suspect]
     Active Substance: ERENUMAB-AOOE
     Indication: Migraine
     Route: 065
  157. APREMILAST [Suspect]
     Active Substance: APREMILAST
     Indication: Rheumatoid arthritis
     Route: 065
  158. APREMILAST [Suspect]
     Active Substance: APREMILAST
     Route: 065
  159. APREMILAST [Suspect]
     Active Substance: APREMILAST
     Route: 065
  160. APREMILAST [Suspect]
     Active Substance: APREMILAST
     Route: 065
  161. PREDNISONE [Suspect]
     Active Substance: PREDNISONE
     Indication: Rheumatoid arthritis
     Route: 065
  162. PREDNISONE [Suspect]
     Active Substance: PREDNISONE
     Route: 065
  163. PREDNISONE [Suspect]
     Active Substance: PREDNISONE
     Route: 065
  164. PREDNISONE [Suspect]
     Active Substance: PREDNISONE
     Route: 065
  165. PREDNISONE [Suspect]
     Active Substance: PREDNISONE
     Route: 048
  166. PREDNISONE [Suspect]
     Active Substance: PREDNISONE
     Route: 065
  167. PREDNISONE [Suspect]
     Active Substance: PREDNISONE
     Route: 048
  168. PREDNISONE [Suspect]
     Active Substance: PREDNISONE
     Route: 048
  169. PREDNISONE [Suspect]
     Active Substance: PREDNISONE
     Route: 048
  170. PREDNISONE [Suspect]
     Active Substance: PREDNISONE
     Route: 048
  171. USTEKINUMAB [Suspect]
     Active Substance: USTEKINUMAB
     Route: 058
  172. USTEKINUMAB [Suspect]
     Active Substance: USTEKINUMAB
     Route: 058
  173. COSENTYX [Suspect]
     Active Substance: SECUKINUMAB
     Indication: Rheumatoid arthritis
     Route: 065
  174. COSENTYX [Suspect]
     Active Substance: SECUKINUMAB
     Route: 065
  175. COSENTYX [Suspect]
     Active Substance: SECUKINUMAB
     Route: 065
  176. ALENDRONIC ACID [Suspect]
     Active Substance: ALENDRONIC ACID
     Indication: Rheumatoid arthritis
     Route: 016
  177. ALENDRONIC ACID [Suspect]
     Active Substance: ALENDRONIC ACID
     Route: 048
  178. ALENDRONIC ACID [Suspect]
     Active Substance: ALENDRONIC ACID
     Route: 048
  179. ALENDRONIC ACID [Suspect]
     Active Substance: ALENDRONIC ACID
     Route: 065
  180. ALENDRONIC ACID [Suspect]
     Active Substance: ALENDRONIC ACID
     Route: 065
  181. ALENDRONIC ACID [Suspect]
     Active Substance: ALENDRONIC ACID
     Route: 048
  182. ALENDRONIC ACID [Suspect]
     Active Substance: ALENDRONIC ACID
     Route: 065
  183. TRIAMCINOLONE ACETONIDE [Suspect]
     Active Substance: TRIAMCINOLONE ACETONIDE
     Indication: Rheumatoid arthritis
     Route: 013
  184. TRIAMCINOLONE ACETONIDE [Suspect]
     Active Substance: TRIAMCINOLONE ACETONIDE
     Route: 065
  185. TRIAMCINOLONE ACETONIDE [Suspect]
     Active Substance: TRIAMCINOLONE ACETONIDE
     Route: 065
  186. TRIAMCINOLONE ACETONIDE [Suspect]
     Active Substance: TRIAMCINOLONE ACETONIDE
     Route: 065
  187. TRIAMCINOLONE ACETONIDE [Suspect]
     Active Substance: TRIAMCINOLONE ACETONIDE
     Route: 065
  188. METFORMIN HYDROCHLORIDE [Suspect]
     Active Substance: METFORMIN HYDROCHLORIDE
     Indication: Rheumatoid arthritis
     Route: 065
  189. METFORMIN HYDROCHLORIDE [Suspect]
     Active Substance: METFORMIN HYDROCHLORIDE
     Route: 042
  190. CANDESARTAN [Suspect]
     Active Substance: CANDESARTAN
     Indication: Migraine
     Route: 065
  191. ERELZI [Suspect]
     Active Substance: ETANERCEPT-SZZS
     Indication: Rheumatoid arthritis
     Route: 065
  192. ERELZI [Suspect]
     Active Substance: ETANERCEPT-SZZS
     Route: 058
  193. ERELZI [Suspect]
     Active Substance: ETANERCEPT-SZZS
     Route: 058
  194. OXYCODONE [Suspect]
     Active Substance: OXYCODONE
     Indication: Rheumatoid arthritis
     Route: 065
  195. OXYCODONE [Suspect]
     Active Substance: OXYCODONE
     Route: 065
  196. OXYCODONE [Suspect]
     Active Substance: OXYCODONE
     Route: 065
  197. OXYCODONE [Suspect]
     Active Substance: OXYCODONE
     Route: 065
  198. OXYCODONE [Suspect]
     Active Substance: OXYCODONE
     Route: 065
  199. OXYCODONE [Suspect]
     Active Substance: OXYCODONE
     Route: 065
  200. OXYCODONE [Suspect]
     Active Substance: OXYCODONE
     Dosage: 125 MG, QW
     Route: 058
  201. OXYCODONE [Suspect]
     Active Substance: OXYCODONE
     Route: 058
  202. OXYCODONE [Suspect]
     Active Substance: OXYCODONE
     Route: 065
  203. OXYCODONE [Suspect]
     Active Substance: OXYCODONE
     Route: 042
  204. LEFLUNOMIDE [Suspect]
     Active Substance: LEFLUNOMIDE
     Indication: Rheumatoid arthritis
     Route: 065
  205. LEFLUNOMIDE [Suspect]
     Active Substance: LEFLUNOMIDE
     Route: 065
  206. LEFLUNOMIDE [Suspect]
     Active Substance: LEFLUNOMIDE
     Route: 065
  207. LEFLUNOMIDE [Suspect]
     Active Substance: LEFLUNOMIDE
     Route: 065
  208. LEFLUNOMIDE [Suspect]
     Active Substance: LEFLUNOMIDE
     Route: 048
  209. LEFLUNOMIDE [Suspect]
     Active Substance: LEFLUNOMIDE
  210. DICLOFENAC POTASSIUM [Suspect]
     Active Substance: DICLOFENAC POTASSIUM
     Route: 065
  211. DICLOFENAC POTASSIUM [Suspect]
     Active Substance: DICLOFENAC POTASSIUM
     Route: 065
  212. DICLOFENAC POTASSIUM [Suspect]
     Active Substance: DICLOFENAC POTASSIUM
     Route: 065
  213. ACETAMINOPHEN [Suspect]
     Active Substance: ACETAMINOPHEN
     Indication: Rheumatoid arthritis
     Route: 065
  214. ACETAMINOPHEN [Suspect]
     Active Substance: ACETAMINOPHEN
     Route: 058
  215. ACETAMINOPHEN [Suspect]
     Active Substance: ACETAMINOPHEN
     Route: 065
  216. ACETAMINOPHEN [Suspect]
     Active Substance: ACETAMINOPHEN
     Route: 065
  217. ACETAMINOPHEN [Suspect]
     Active Substance: ACETAMINOPHEN
     Route: 065
  218. ACETAMINOPHEN [Suspect]
     Active Substance: ACETAMINOPHEN
     Route: 058
  219. ACETAMINOPHEN [Suspect]
     Active Substance: ACETAMINOPHEN
     Route: 065
  220. ACETAMINOPHEN [Suspect]
     Active Substance: ACETAMINOPHEN
     Route: 065
  221. CHLORHEXIDINE GLUCONATE [Suspect]
     Active Substance: CHLORHEXIDINE GLUCONATE
     Route: 061
  222. CHLORHEXIDINE GLUCONATE [Suspect]
     Active Substance: CHLORHEXIDINE GLUCONATE
     Route: 065
  223. CHLORHEXIDINE GLUCONATE [Suspect]
     Active Substance: CHLORHEXIDINE GLUCONATE
     Route: 065
  224. CHLORHEXIDINE GLUCONATE [Suspect]
     Active Substance: CHLORHEXIDINE GLUCONATE
     Route: 061
  225. CHLORHEXIDINE GLUCONATE [Suspect]
     Active Substance: CHLORHEXIDINE GLUCONATE
     Route: 065
  226. CHLORHEXIDINE GLUCONATE [Suspect]
     Active Substance: CHLORHEXIDINE GLUCONATE
     Route: 065
  227. CHOLECALCIFEROL [Suspect]
     Active Substance: CHOLECALCIFEROL
     Route: 065
  228. CHOLECALCIFEROL [Suspect]
     Active Substance: CHOLECALCIFEROL
     Route: 065
  229. LEFLUNOMIDE [Suspect]
     Active Substance: LEFLUNOMIDE
     Indication: Rheumatoid arthritis
     Route: 048
  230. LEFLUNOMIDE [Suspect]
     Active Substance: LEFLUNOMIDE
     Route: 065
  231. LEFLUNOMIDE [Suspect]
     Active Substance: LEFLUNOMIDE
     Route: 065
  232. LEFLUNOMIDE [Suspect]
     Active Substance: LEFLUNOMIDE
     Route: 048
  233. LEFLUNOMIDE [Suspect]
     Active Substance: LEFLUNOMIDE
     Route: 048
  234. LEFLUNOMIDE [Suspect]
     Active Substance: LEFLUNOMIDE
     Route: 048
  235. LEFLUNOMIDE [Suspect]
     Active Substance: LEFLUNOMIDE
     Route: 048
  236. LEFLUNOMIDE [Suspect]
     Active Substance: LEFLUNOMIDE
     Route: 048
  237. LEFLUNOMIDE [Suspect]
     Active Substance: LEFLUNOMIDE
     Route: 048
  238. LEFLUNOMIDE [Suspect]
     Active Substance: LEFLUNOMIDE
     Route: 065
  239. LEFLUNOMIDE [Suspect]
     Active Substance: LEFLUNOMIDE
     Route: 048
  240. PREDNISONE [Suspect]
     Active Substance: PREDNISONE
     Indication: Rheumatoid arthritis
     Route: 065
  241. PREDNISONE [Suspect]
     Active Substance: PREDNISONE
     Route: 048
  242. PREDNISONE [Suspect]
     Active Substance: PREDNISONE
     Route: 048
  243. PREDNISONE [Suspect]
     Active Substance: PREDNISONE
     Route: 065
  244. PREDNISONE [Suspect]
     Active Substance: PREDNISONE
     Route: 065
  245. PREDNISONE [Suspect]
     Active Substance: PREDNISONE
     Route: 048
  246. PREDNISONE [Suspect]
     Active Substance: PREDNISONE
     Route: 048
  247. PREDNISONE [Suspect]
     Active Substance: PREDNISONE
     Route: 048
  248. PREDNISONE [Suspect]
     Active Substance: PREDNISONE
     Route: 048
  249. HUMIRA [Suspect]
     Active Substance: ADALIMUMAB
     Indication: Rheumatoid arthritis
     Route: 065
  250. HUMIRA [Suspect]
     Active Substance: ADALIMUMAB
     Indication: Prostatic specific antigen
     Route: 058
  251. HUMIRA [Suspect]
     Active Substance: ADALIMUMAB
     Route: 058
  252. HUMIRA [Suspect]
     Active Substance: ADALIMUMAB
     Route: 058
  253. HUMIRA [Suspect]
     Active Substance: ADALIMUMAB
     Route: 058
  254. HUMIRA [Suspect]
     Active Substance: ADALIMUMAB
     Route: 065
  255. HUMIRA [Suspect]
     Active Substance: ADALIMUMAB
     Route: 058
  256. HUMIRA [Suspect]
     Active Substance: ADALIMUMAB
     Route: 058
  257. HUMIRA [Suspect]
     Active Substance: ADALIMUMAB
     Route: 058
  258. HUMIRA [Suspect]
     Active Substance: ADALIMUMAB
     Route: 058
  259. HYDROXYCHLOROQUINE [Suspect]
     Active Substance: HYDROXYCHLOROQUINE
     Indication: Rheumatoid arthritis
     Route: 065
  260. HYDROXYCHLOROQUINE [Suspect]
     Active Substance: HYDROXYCHLOROQUINE
     Route: 065
  261. HYDROXYCHLOROQUINE [Suspect]
     Active Substance: HYDROXYCHLOROQUINE
     Route: 058
  262. HYDROXYCHLOROQUINE [Suspect]
     Active Substance: HYDROXYCHLOROQUINE
     Route: 065
  263. HYDROXYCHLOROQUINE [Suspect]
     Active Substance: HYDROXYCHLOROQUINE
     Route: 016
  264. HYDROXYCHLOROQUINE [Suspect]
     Active Substance: HYDROXYCHLOROQUINE
     Route: 065
  265. HYDROXYCHLOROQUINE [Suspect]
     Active Substance: HYDROXYCHLOROQUINE
     Route: 065
  266. HYDROXYCHLOROQUINE [Suspect]
     Active Substance: HYDROXYCHLOROQUINE
     Route: 065
  267. HYDROXYCHLOROQUINE [Suspect]
     Active Substance: HYDROXYCHLOROQUINE
     Route: 065
  268. HYDROXYCHLOROQUINE [Suspect]
     Active Substance: HYDROXYCHLOROQUINE
     Route: 065
  269. HYDROXYCHLOROQUINE [Suspect]
     Active Substance: HYDROXYCHLOROQUINE
     Route: 065
  270. HYDROXYCHLOROQUINE [Suspect]
     Active Substance: HYDROXYCHLOROQUINE
     Route: 065
  271. HYDROXYCHLOROQUINE [Suspect]
     Active Substance: HYDROXYCHLOROQUINE
     Route: 065
  272. HYDROXYCHLOROQUINE [Suspect]
     Active Substance: HYDROXYCHLOROQUINE
     Route: 065
  273. HYDROXYCHLOROQUINE [Suspect]
     Active Substance: HYDROXYCHLOROQUINE
  274. HYDROXYCHLOROQUINE [Suspect]
     Active Substance: HYDROXYCHLOROQUINE
  275. HYDROXYCHLOROQUINE [Suspect]
     Active Substance: HYDROXYCHLOROQUINE
     Route: 065
  276. HYDROXYCHLOROQUINE [Suspect]
     Active Substance: HYDROXYCHLOROQUINE
     Route: 065
  277. HYDROXYCHLOROQUINE [Suspect]
     Active Substance: HYDROXYCHLOROQUINE
     Route: 065
  278. HYDROXYCHLOROQUINE [Suspect]
     Active Substance: HYDROXYCHLOROQUINE
     Route: 016
  279. HYDROXYCHLOROQUINE [Suspect]
     Active Substance: HYDROXYCHLOROQUINE
     Route: 065
  280. HYDROXYCHLOROQUINE [Suspect]
     Active Substance: HYDROXYCHLOROQUINE
     Route: 065
  281. HYDROXYCHLOROQUINE [Suspect]
     Active Substance: HYDROXYCHLOROQUINE
     Route: 065
  282. HYDROXYCHLOROQUINE [Suspect]
     Active Substance: HYDROXYCHLOROQUINE
     Route: 065
  283. HYDROXYCHLOROQUINE [Suspect]
     Active Substance: HYDROXYCHLOROQUINE
     Route: 065
  284. HYDROXYCHLOROQUINE [Suspect]
     Active Substance: HYDROXYCHLOROQUINE
     Route: 065
  285. HYDROXYCHLOROQUINE [Suspect]
     Active Substance: HYDROXYCHLOROQUINE
     Indication: Rheumatoid arthritis
     Route: 048
  286. HYDROXYCHLOROQUINE [Suspect]
     Active Substance: HYDROXYCHLOROQUINE
     Route: 048
  287. HYDROXYCHLOROQUINE [Suspect]
     Active Substance: HYDROXYCHLOROQUINE
     Route: 048
  288. HYDROXYCHLOROQUINE [Suspect]
     Active Substance: HYDROXYCHLOROQUINE
     Route: 048
  289. HYDROXYCHLOROQUINE [Suspect]
     Active Substance: HYDROXYCHLOROQUINE
     Route: 048
  290. HYDROXYCHLOROQUINE [Suspect]
     Active Substance: HYDROXYCHLOROQUINE
     Route: 048
  291. HYDROXYCHLOROQUINE [Suspect]
     Active Substance: HYDROXYCHLOROQUINE
     Route: 048
  292. HYDROXYCHLOROQUINE [Suspect]
     Active Substance: HYDROXYCHLOROQUINE
     Route: 048
  293. HYDROXYCHLOROQUINE [Suspect]
     Active Substance: HYDROXYCHLOROQUINE
     Route: 048
  294. HYDROXYCHLOROQUINE [Suspect]
     Active Substance: HYDROXYCHLOROQUINE
     Route: 048
  295. HYDROXYCHLOROQUINE [Suspect]
     Active Substance: HYDROXYCHLOROQUINE
     Route: 048
  296. ACETAMINOPHEN [Suspect]
     Active Substance: ACETAMINOPHEN
     Indication: Rheumatoid arthritis
     Route: 065
  297. ACETAMINOPHEN [Suspect]
     Active Substance: ACETAMINOPHEN
     Route: 065
  298. ACETAMINOPHEN [Suspect]
     Active Substance: ACETAMINOPHEN
     Route: 065
  299. ACETAMINOPHEN [Suspect]
     Active Substance: ACETAMINOPHEN
     Route: 065
  300. ACETAMINOPHEN [Suspect]
     Active Substance: ACETAMINOPHEN
     Route: 065
  301. ACETAMINOPHEN [Suspect]
     Active Substance: ACETAMINOPHEN
     Route: 065
  302. LAMICTAL [Suspect]
     Active Substance: LAMOTRIGINE
     Route: 048
  303. LAMICTAL [Suspect]
     Active Substance: LAMOTRIGINE
     Route: 048
  304. LAMICTAL [Suspect]
     Active Substance: LAMOTRIGINE
     Route: 048
  305. LAMICTAL [Suspect]
     Active Substance: LAMOTRIGINE
     Route: 048
  306. LAMICTAL [Suspect]
     Active Substance: LAMOTRIGINE
     Route: 048
  307. LAMICTAL [Suspect]
     Active Substance: LAMOTRIGINE
     Route: 048
  308. LAMICTAL [Suspect]
     Active Substance: LAMOTRIGINE
     Route: 048
  309. LAMICTAL [Suspect]
     Active Substance: LAMOTRIGINE
     Route: 048
  310. LAMICTAL [Suspect]
     Active Substance: LAMOTRIGINE
     Route: 048
  311. LAMICTAL [Suspect]
     Active Substance: LAMOTRIGINE
     Route: 048
  312. LAMICTAL [Suspect]
     Active Substance: LAMOTRIGINE
     Route: 048
  313. LAMICTAL [Suspect]
     Active Substance: LAMOTRIGINE
     Route: 048
  314. MINOCYCLINE [Suspect]
     Active Substance: MINOCYCLINE HYDROCHLORIDE
     Indication: Rheumatoid arthritis
     Route: 065
  315. MINOCYCLINE [Suspect]
     Active Substance: MINOCYCLINE HYDROCHLORIDE
     Route: 065
  316. MINOCYCLINE HYDROCHLORIDE [Suspect]
     Active Substance: MINOCYCLINE HYDROCHLORIDE
     Indication: Rheumatoid arthritis
     Route: 065
  317. MINOCYCLINE HYDROCHLORIDE [Suspect]
     Active Substance: MINOCYCLINE HYDROCHLORIDE
     Route: 065
  318. MYOCHRYSINE [Suspect]
     Active Substance: GOLD SODIUM THIOMALATE
     Indication: Rheumatoid arthritis
     Route: 030
  319. MYOCHRYSINE [Suspect]
     Active Substance: GOLD SODIUM THIOMALATE
     Route: 030
  320. MYRBETRIQ [Suspect]
     Active Substance: MIRABEGRON
     Route: 065
  321. MYRBETRIQ [Suspect]
     Active Substance: MIRABEGRON
     Route: 065
  322. MYRBETRIQ [Suspect]
     Active Substance: MIRABEGRON
     Route: 065
  323. MYRBETRIQ [Suspect]
     Active Substance: MIRABEGRON
     Route: 065
  324. NAPROXEN [Suspect]
     Active Substance: NAPROXEN
     Indication: Rheumatoid arthritis
     Route: 065
  325. NAPROXEN [Suspect]
     Active Substance: NAPROXEN
  326. NAPROXEN [Suspect]
     Active Substance: NAPROXEN
     Route: 065
  327. NAPROXEN [Suspect]
     Active Substance: NAPROXEN
     Route: 065
  328. ORENCIA [Suspect]
     Active Substance: ABATACEPT
     Indication: Rheumatoid arthritis
     Route: 065
  329. ORENCIA [Suspect]
     Active Substance: ABATACEPT
     Route: 065
  330. ORENCIA [Suspect]
     Active Substance: ABATACEPT
     Route: 065
  331. ORENCIA [Suspect]
     Active Substance: ABATACEPT
     Route: 065
  332. ORENCIA [Suspect]
     Active Substance: ABATACEPT
     Route: 065
  333. ORENCIA [Suspect]
     Active Substance: ABATACEPT
     Route: 065
  334. ORENCIA [Suspect]
     Active Substance: ABATACEPT
     Route: 065
  335. ORENCIA [Suspect]
     Active Substance: ABATACEPT
     Dosage: 125 MG, QW 1 EVERY 1 WEEKS
     Route: 058
  336. ORENCIA [Suspect]
     Active Substance: ABATACEPT
     Route: 058
  337. ORENCIA [Suspect]
     Active Substance: ABATACEPT
     Route: 065
  338. ORENCIA [Suspect]
     Active Substance: ABATACEPT
     Route: 065
  339. ORENCIA [Suspect]
     Active Substance: ABATACEPT
     Route: 065
  340. ORENCIA [Suspect]
     Active Substance: ABATACEPT
     Route: 042
  341. ORENCIA [Suspect]
     Active Substance: ABATACEPT
     Route: 042
  342. ORENCIA [Suspect]
     Active Substance: ABATACEPT
     Route: 065
  343. ORENCIA [Suspect]
     Active Substance: ABATACEPT
     Route: 065
  344. ORENCIA [Suspect]
     Active Substance: ABATACEPT
     Route: 042
  345. ORENCIA [Suspect]
     Active Substance: ABATACEPT
     Route: 065
  346. ORENCIA [Suspect]
     Active Substance: ABATACEPT
     Route: 065
  347. ORENCIA [Suspect]
     Active Substance: ABATACEPT
     Route: 058
  348. ORENCIA [Suspect]
     Active Substance: ABATACEPT
     Route: 058
  349. ORENCIA [Suspect]
     Active Substance: ABATACEPT
     Route: 065
  350. ORENCIA [Suspect]
     Active Substance: ABATACEPT
     Route: 065
  351. ORENCIA [Suspect]
     Active Substance: ABATACEPT
     Route: 065
  352. NUCALA [Suspect]
     Active Substance: MEPOLIZUMAB
     Route: 065
  353. NUCALA [Suspect]
     Active Substance: MEPOLIZUMAB
     Route: 065
  354. PHENYLEPHRINE HYDROCHLORIDE [Suspect]
     Active Substance: PHENYLEPHRINE HYDROCHLORIDE
     Indication: Rheumatoid arthritis
     Route: 065
  355. PHENYLEPHRINE HYDROCHLORIDE [Suspect]
     Active Substance: PHENYLEPHRINE HYDROCHLORIDE
     Route: 065
  356. PHTHALYLSULFATHIAZOLE [Suspect]
     Active Substance: PHTHALYLSULFATHIAZOLE
     Indication: Rheumatoid arthritis
     Route: 058
  357. PHTHALYLSULFATHIAZOLE [Suspect]
     Active Substance: PHTHALYLSULFATHIAZOLE
     Route: 065
  358. PHTHALYLSULFATHIAZOLE [Suspect]
     Active Substance: PHTHALYLSULFATHIAZOLE
     Route: 065
  359. PHTHALYLSULFATHIAZOLE [Suspect]
     Active Substance: PHTHALYLSULFATHIAZOLE
     Route: 065
  360. PHTHALYLSULFATHIAZOLE [Suspect]
     Active Substance: PHTHALYLSULFATHIAZOLE
     Route: 065
  361. PHTHALYLSULFATHIAZOLE [Suspect]
     Active Substance: PHTHALYLSULFATHIAZOLE
     Route: 065
  362. PHTHALYLSULFATHIAZOLE [Suspect]
     Active Substance: PHTHALYLSULFATHIAZOLE
     Route: 042
  363. PHTHALYLSULFATHIAZOLE [Suspect]
     Active Substance: PHTHALYLSULFATHIAZOLE
     Indication: Rheumatoid arthritis
     Route: 048
  364. PHTHALYLSULFATHIAZOLE [Suspect]
     Active Substance: PHTHALYLSULFATHIAZOLE
     Route: 048
  365. PSEUDOEPHEDRINE HYDROCHLORIDE [Suspect]
     Active Substance: PSEUDOEPHEDRINE HYDROCHLORIDE
     Indication: Rheumatoid arthritis
     Route: 065
  366. PSEUDOEPHEDRINE HYDROCHLORIDE [Suspect]
     Active Substance: PSEUDOEPHEDRINE HYDROCHLORIDE
     Route: 065
  367. PSEUDOEPHEDRINE HYDROCHLORIDE [Suspect]
     Active Substance: PSEUDOEPHEDRINE HYDROCHLORIDE
     Route: 065
  368. PSEUDOEPHEDRINE HYDROCHLORIDE [Suspect]
     Active Substance: PSEUDOEPHEDRINE HYDROCHLORIDE
     Route: 065
  369. RAMIPRIL [Suspect]
     Active Substance: RAMIPRIL
     Indication: Rheumatoid arthritis
     Route: 065
  370. RAMIPRIL [Suspect]
     Active Substance: RAMIPRIL
     Route: 065
  371. RAMIPRIL [Suspect]
     Active Substance: RAMIPRIL
     Route: 016
  372. RAMIPRIL [Suspect]
     Active Substance: RAMIPRIL
     Route: 065
  373. RAMIPRIL [Suspect]
     Active Substance: RAMIPRIL
     Route: 065
  374. RAMIPRIL [Suspect]
     Active Substance: RAMIPRIL
     Route: 016
  375. RAMIPRIL [Suspect]
     Active Substance: RAMIPRIL
     Route: 042
  376. RANITIDINE [Suspect]
     Active Substance: RANITIDINE
     Route: 065
  377. RANITIDINE [Suspect]
     Active Substance: RANITIDINE
     Route: 065
  378. CETIRIZINE HYDROCHLORIDE\PSEUDOEPHEDRINE HYDROCHLORIDE [Suspect]
     Active Substance: CETIRIZINE HYDROCHLORIDE\PSEUDOEPHEDRINE HYDROCHLORIDE
     Indication: Rheumatoid arthritis
     Route: 065
  379. CETIRIZINE HYDROCHLORIDE\PSEUDOEPHEDRINE HYDROCHLORIDE [Suspect]
     Active Substance: CETIRIZINE HYDROCHLORIDE\PSEUDOEPHEDRINE HYDROCHLORIDE
     Route: 065
  380. CETIRIZINE HYDROCHLORIDE\PSEUDOEPHEDRINE HYDROCHLORIDE [Suspect]
     Active Substance: CETIRIZINE HYDROCHLORIDE\PSEUDOEPHEDRINE HYDROCHLORIDE
     Route: 065
  381. CETIRIZINE HYDROCHLORIDE\PSEUDOEPHEDRINE HYDROCHLORIDE [Suspect]
     Active Substance: CETIRIZINE HYDROCHLORIDE\PSEUDOEPHEDRINE HYDROCHLORIDE
     Route: 065
  382. CETIRIZINE HYDROCHLORIDE\PSEUDOEPHEDRINE HYDROCHLORIDE [Suspect]
     Active Substance: CETIRIZINE HYDROCHLORIDE\PSEUDOEPHEDRINE HYDROCHLORIDE
     Route: 065
  383. CETIRIZINE HYDROCHLORIDE\PSEUDOEPHEDRINE HYDROCHLORIDE [Suspect]
     Active Substance: CETIRIZINE HYDROCHLORIDE\PSEUDOEPHEDRINE HYDROCHLORIDE
     Route: 065
  384. CETIRIZINE HYDROCHLORIDE\PSEUDOEPHEDRINE HYDROCHLORIDE [Suspect]
     Active Substance: CETIRIZINE HYDROCHLORIDE\PSEUDOEPHEDRINE HYDROCHLORIDE
     Route: 065
  385. CETIRIZINE HYDROCHLORIDE\PSEUDOEPHEDRINE HYDROCHLORIDE [Suspect]
     Active Substance: CETIRIZINE HYDROCHLORIDE\PSEUDOEPHEDRINE HYDROCHLORIDE
     Route: 065
  386. CETIRIZINE HYDROCHLORIDE\PSEUDOEPHEDRINE HYDROCHLORIDE [Suspect]
     Active Substance: CETIRIZINE HYDROCHLORIDE\PSEUDOEPHEDRINE HYDROCHLORIDE
     Route: 065
  387. CETIRIZINE HYDROCHLORIDE\PSEUDOEPHEDRINE HYDROCHLORIDE [Suspect]
     Active Substance: CETIRIZINE HYDROCHLORIDE\PSEUDOEPHEDRINE HYDROCHLORIDE
     Route: 065
  388. CETIRIZINE HYDROCHLORIDE\PSEUDOEPHEDRINE HYDROCHLORIDE [Suspect]
     Active Substance: CETIRIZINE HYDROCHLORIDE\PSEUDOEPHEDRINE HYDROCHLORIDE
     Route: 065
  389. CETIRIZINE HYDROCHLORIDE\PSEUDOEPHEDRINE HYDROCHLORIDE [Suspect]
     Active Substance: CETIRIZINE HYDROCHLORIDE\PSEUDOEPHEDRINE HYDROCHLORIDE
     Route: 065
  390. CETIRIZINE HYDROCHLORIDE\PSEUDOEPHEDRINE HYDROCHLORIDE [Suspect]
     Active Substance: CETIRIZINE HYDROCHLORIDE\PSEUDOEPHEDRINE HYDROCHLORIDE
     Route: 065
  391. REMICADE [Suspect]
     Active Substance: INFLIXIMAB
     Indication: Rheumatoid arthritis
     Route: 058
  392. REMICADE [Suspect]
     Active Substance: INFLIXIMAB
     Route: 058
  393. REMICADE [Suspect]
     Active Substance: INFLIXIMAB
     Route: 065
  394. REMICADE [Suspect]
     Active Substance: INFLIXIMAB
     Route: 065
  395. REMICADE [Suspect]
     Active Substance: INFLIXIMAB
     Route: 065
  396. REMICADE [Suspect]
     Active Substance: INFLIXIMAB
     Route: 065
  397. REMICADE [Suspect]
     Active Substance: INFLIXIMAB
     Route: 042
  398. REMICADE [Suspect]
     Active Substance: INFLIXIMAB
     Route: 058
  399. REMICADE [Suspect]
     Active Substance: INFLIXIMAB
     Route: 058
  400. REMICADE [Suspect]
     Active Substance: INFLIXIMAB
     Route: 065
  401. REMICADE [Suspect]
     Active Substance: INFLIXIMAB
     Route: 065
  402. REMICADE [Suspect]
     Active Substance: INFLIXIMAB
     Route: 065
  403. REMICADE [Suspect]
     Active Substance: INFLIXIMAB
     Route: 065
  404. REMICADE [Suspect]
     Active Substance: INFLIXIMAB
     Route: 065
  405. SIMPONI [Suspect]
     Active Substance: GOLIMUMAB
     Indication: Prostatic specific antigen
     Route: 058
  406. SIMPONI [Suspect]
     Active Substance: GOLIMUMAB
     Indication: Rheumatoid arthritis
     Route: 058
  407. SIMPONI [Suspect]
     Active Substance: GOLIMUMAB
     Route: 058
  408. SIMPONI [Suspect]
     Active Substance: GOLIMUMAB
     Route: 065
  409. SIMPONI [Suspect]
     Active Substance: GOLIMUMAB
     Route: 058
  410. SIMPONI [Suspect]
     Active Substance: GOLIMUMAB
     Route: 065
  411. SIMPONI [Suspect]
     Active Substance: GOLIMUMAB
     Route: 065
  412. SIMPONI [Suspect]
     Active Substance: GOLIMUMAB
     Route: 058
  413. SIMPONI [Suspect]
     Active Substance: GOLIMUMAB
     Route: 058
  414. SIMPONI [Suspect]
     Active Substance: GOLIMUMAB
     Route: 058
  415. SIMPONI [Suspect]
     Active Substance: GOLIMUMAB
     Route: 058
  416. SIRUKUMAB [Suspect]
     Active Substance: SIRUKUMAB
     Route: 065
  417. SIRUKUMAB [Suspect]
     Active Substance: SIRUKUMAB
     Route: 065
  418. GOLD SODIUM THIOMALATE [Suspect]
     Active Substance: GOLD SODIUM THIOMALATE
     Route: 065
  419. GOLD SODIUM THIOMALATE [Suspect]
     Active Substance: GOLD SODIUM THIOMALATE
     Route: 065
  420. GOLD SODIUM THIOMALATE [Suspect]
     Active Substance: GOLD SODIUM THIOMALATE
     Route: 048
  421. GOLD SODIUM THIOMALATE [Suspect]
     Active Substance: GOLD SODIUM THIOMALATE
     Route: 065
  422. GOLD SODIUM THIOMALATE [Suspect]
     Active Substance: GOLD SODIUM THIOMALATE
     Route: 065
  423. GOLD SODIUM THIOMALATE [Suspect]
     Active Substance: GOLD SODIUM THIOMALATE
     Route: 048
  424. TETRACYCLINE HYDROCHLORIDE [Suspect]
     Active Substance: TETRACYCLINE HYDROCHLORIDE
     Indication: Rheumatoid arthritis
     Route: 048
  425. TETRACYCLINE HYDROCHLORIDE [Suspect]
     Active Substance: TETRACYCLINE HYDROCHLORIDE
     Route: 048
  426. TOPIRAMATE [Suspect]
     Active Substance: TOPIRAMATE
     Indication: Rheumatoid arthritis
     Route: 065
  427. TOPIRAMATE [Suspect]
     Active Substance: TOPIRAMATE
     Route: 065
  428. TOPIRAMATE [Suspect]
     Active Substance: TOPIRAMATE
     Route: 065
  429. TOPIRAMATE [Suspect]
     Active Substance: TOPIRAMATE
     Route: 065
  430. TOPIRAMATE [Suspect]
     Active Substance: TOPIRAMATE
     Route: 065
  431. TOPIRAMATE [Suspect]
     Active Substance: TOPIRAMATE
     Route: 065
  432. TOPIRAMATE [Suspect]
     Active Substance: TOPIRAMATE
     Route: 065
  433. TOPIRAMATE [Suspect]
     Active Substance: TOPIRAMATE
     Route: 065
  434. TRAMADOL HYDROCHLORIDE [Suspect]
     Active Substance: TRAMADOL HYDROCHLORIDE
     Route: 065
  435. ACTEMRA [Suspect]
     Active Substance: TOCILIZUMAB
     Indication: Rheumatoid arthritis
     Route: 058
  436. ACTEMRA [Suspect]
     Active Substance: TOCILIZUMAB
     Route: 042
  437. ACTEMRA [Suspect]
     Active Substance: TOCILIZUMAB
     Route: 016
  438. ACTEMRA [Suspect]
     Active Substance: TOCILIZUMAB
     Route: 042
  439. ACTEMRA [Suspect]
     Active Substance: TOCILIZUMAB
     Route: 065
  440. ACTEMRA [Suspect]
     Active Substance: TOCILIZUMAB
     Route: 065
  441. ACTEMRA [Suspect]
     Active Substance: TOCILIZUMAB
     Route: 042
  442. ACTEMRA [Suspect]
     Active Substance: TOCILIZUMAB
     Route: 016
  443. ACTEMRA [Suspect]
     Active Substance: TOCILIZUMAB
     Route: 065
  444. ACTEMRA [Suspect]
     Active Substance: TOCILIZUMAB
     Route: 058
  445. ACTEMRA [Suspect]
     Active Substance: TOCILIZUMAB
     Route: 058
  446. ACTEMRA [Suspect]
     Active Substance: TOCILIZUMAB
     Route: 058
  447. ACTEMRA [Suspect]
     Active Substance: TOCILIZUMAB
     Dosage: 25 MG, QW
     Route: 058
  448. ACTEMRA [Suspect]
     Active Substance: TOCILIZUMAB
     Route: 065
  449. ACTEMRA [Suspect]
     Active Substance: TOCILIZUMAB
     Route: 058
  450. ACTEMRA [Suspect]
     Active Substance: TOCILIZUMAB
     Route: 042
  451. ACTEMRA [Suspect]
     Active Substance: TOCILIZUMAB
     Route: 058
  452. ACTEMRA [Suspect]
     Active Substance: TOCILIZUMAB
     Route: 065
  453. ACTEMRA [Suspect]
     Active Substance: TOCILIZUMAB
     Route: 058
  454. ACTEMRA [Suspect]
     Active Substance: TOCILIZUMAB
     Route: 065
  455. ACTEMRA [Suspect]
     Active Substance: TOCILIZUMAB
     Route: 065
  456. ACTEMRA [Suspect]
     Active Substance: TOCILIZUMAB
     Route: 065
  457. ACTEMRA [Suspect]
     Active Substance: TOCILIZUMAB
     Route: 058
  458. ACTEMRA [Suspect]
     Active Substance: TOCILIZUMAB
     Route: 016
  459. ACTEMRA [Suspect]
     Active Substance: TOCILIZUMAB
  460. ARAVA [Suspect]
     Active Substance: LEFLUNOMIDE
     Indication: Rheumatoid arthritis
     Route: 065
  461. ARAVA [Suspect]
     Active Substance: LEFLUNOMIDE
     Route: 065
  462. ARAVA [Suspect]
     Active Substance: LEFLUNOMIDE
     Route: 048
  463. ARAVA [Suspect]
     Active Substance: LEFLUNOMIDE
     Route: 048
  464. ARAVA [Suspect]
     Active Substance: LEFLUNOMIDE
     Route: 065
  465. ARAVA [Suspect]
     Active Substance: LEFLUNOMIDE
     Route: 048
  466. ARAVA [Suspect]
     Active Substance: LEFLUNOMIDE
     Route: 048
  467. ARAVA [Suspect]
     Active Substance: LEFLUNOMIDE
     Route: 065
  468. ARAVA [Suspect]
     Active Substance: LEFLUNOMIDE
     Route: 065
  469. ARAVA [Suspect]
     Active Substance: LEFLUNOMIDE
     Route: 048
  470. ARAVA [Suspect]
     Active Substance: LEFLUNOMIDE
     Route: 048
  471. ARAVA [Suspect]
     Active Substance: LEFLUNOMIDE
     Route: 048
  472. ARAVA [Suspect]
     Active Substance: LEFLUNOMIDE
     Route: 048
  473. ARAVA [Suspect]
     Active Substance: LEFLUNOMIDE
     Route: 048
  474. AZATHIOPRINE SODIUM [Suspect]
     Active Substance: AZATHIOPRINE SODIUM
     Indication: Rheumatoid arthritis
     Route: 065
  475. AZATHIOPRINE SODIUM [Suspect]
     Active Substance: AZATHIOPRINE SODIUM
     Route: 065
  476. AZATHIOPRINE SODIUM [Suspect]
     Active Substance: AZATHIOPRINE SODIUM
     Route: 065
  477. AZATHIOPRINE SODIUM [Suspect]
     Active Substance: AZATHIOPRINE SODIUM
     Route: 065
  478. BERINERT [Suspect]
     Active Substance: HUMAN C1-ESTERASE INHIBITOR
     Route: 065
  479. BERINERT [Suspect]
     Active Substance: HUMAN C1-ESTERASE INHIBITOR
     Route: 065
  480. BOTULINUM TOXIN TYPE A [Suspect]
     Active Substance: BOTULINUM TOXIN TYPE A
     Route: 065
  481. BOTULINUM TOXIN TYPE A [Suspect]
     Active Substance: BOTULINUM TOXIN TYPE A
     Route: 065
  482. BUTRANS [Suspect]
     Active Substance: BUPRENORPHINE
     Indication: Migraine
     Route: 065
  483. BUTRANS [Suspect]
     Active Substance: BUPRENORPHINE
     Route: 065
  484. CELEBREX [Suspect]
     Active Substance: CELECOXIB
     Indication: Migraine
     Route: 048
  485. CELEBREX [Suspect]
     Active Substance: CELECOXIB
     Route: 065
  486. CERTOLIZUMAB PEGOL [Suspect]
     Active Substance: CERTOLIZUMAB PEGOL
     Route: 058
  487. CERTOLIZUMAB PEGOL [Suspect]
     Active Substance: CERTOLIZUMAB PEGOL
     Route: 058
  488. CERTOLIZUMAB PEGOL [Suspect]
     Active Substance: CERTOLIZUMAB PEGOL
     Route: 058
  489. CERTOLIZUMAB PEGOL [Suspect]
     Active Substance: CERTOLIZUMAB PEGOL
     Route: 065
  490. CERTOLIZUMAB PEGOL [Suspect]
     Active Substance: CERTOLIZUMAB PEGOL
     Route: 065
  491. CERTOLIZUMAB PEGOL [Suspect]
     Active Substance: CERTOLIZUMAB PEGOL
     Route: 065
  492. CETIRIZINE HYDROCHLORIDE [Suspect]
     Active Substance: CETIRIZINE HYDROCHLORIDE
     Indication: Rheumatoid arthritis
     Route: 016
  493. CETIRIZINE HYDROCHLORIDE [Suspect]
     Active Substance: CETIRIZINE HYDROCHLORIDE
     Route: 065
  494. CETIRIZINE HYDROCHLORIDE [Suspect]
     Active Substance: CETIRIZINE HYDROCHLORIDE
     Route: 065
  495. CETIRIZINE HYDROCHLORIDE [Suspect]
     Active Substance: CETIRIZINE HYDROCHLORIDE
     Route: 065
  496. CETIRIZINE HYDROCHLORIDE [Suspect]
     Active Substance: CETIRIZINE HYDROCHLORIDE
     Route: 065
  497. CETIRIZINE HYDROCHLORIDE [Suspect]
     Active Substance: CETIRIZINE HYDROCHLORIDE
     Route: 065
  498. CETIRIZINE HYDROCHLORIDE [Suspect]
     Active Substance: CETIRIZINE HYDROCHLORIDE
     Route: 065
  499. CETIRIZINE HYDROCHLORIDE [Suspect]
     Active Substance: CETIRIZINE HYDROCHLORIDE
     Route: 065
  500. CETIRIZINE HYDROCHLORIDE [Suspect]
     Active Substance: CETIRIZINE HYDROCHLORIDE
     Route: 065
  501. CETIRIZINE HYDROCHLORIDE [Suspect]
     Active Substance: CETIRIZINE HYDROCHLORIDE
     Route: 065
  502. CETIRIZINE HYDROCHLORIDE [Suspect]
     Active Substance: CETIRIZINE HYDROCHLORIDE
     Route: 065
  503. CETIRIZINE HYDROCHLORIDE [Suspect]
     Active Substance: CETIRIZINE HYDROCHLORIDE
     Route: 065
  504. CETIRIZINE HYDROCHLORIDE [Suspect]
     Active Substance: CETIRIZINE HYDROCHLORIDE
     Route: 065
  505. CETIRIZINE HYDROCHLORIDE [Suspect]
     Active Substance: CETIRIZINE HYDROCHLORIDE
     Route: 065
  506. CETIRIZINE HYDROCHLORIDE [Suspect]
     Active Substance: CETIRIZINE HYDROCHLORIDE
     Route: 065
  507. CETIRIZINE HYDROCHLORIDE [Suspect]
     Active Substance: CETIRIZINE HYDROCHLORIDE
     Route: 065
  508. CETIRIZINE HYDROCHLORIDE [Suspect]
     Active Substance: CETIRIZINE HYDROCHLORIDE
     Route: 065
  509. CETIRIZINE HYDROCHLORIDE [Suspect]
     Active Substance: CETIRIZINE HYDROCHLORIDE
     Route: 065
  510. CETIRIZINE HYDROCHLORIDE [Suspect]
     Active Substance: CETIRIZINE HYDROCHLORIDE
     Route: 048
  511. CETIRIZINE HYDROCHLORIDE [Suspect]
     Active Substance: CETIRIZINE HYDROCHLORIDE
     Route: 065
  512. CETIRIZINE HYDROCHLORIDE [Suspect]
     Active Substance: CETIRIZINE HYDROCHLORIDE
     Route: 065
  513. CETIRIZINE HYDROCHLORIDE [Suspect]
     Active Substance: CETIRIZINE HYDROCHLORIDE
     Route: 065
  514. CETIRIZINE HYDROCHLORIDE [Suspect]
     Active Substance: CETIRIZINE HYDROCHLORIDE
     Route: 065
  515. CETIRIZINE HYDROCHLORIDE [Suspect]
     Active Substance: CETIRIZINE HYDROCHLORIDE
     Route: 065
  516. CETIRIZINE HYDROCHLORIDE [Suspect]
     Active Substance: CETIRIZINE HYDROCHLORIDE
     Indication: Rheumatoid arthritis
     Route: 048
  517. CETIRIZINE HYDROCHLORIDE [Suspect]
     Active Substance: CETIRIZINE HYDROCHLORIDE
     Route: 048
  518. CETIRIZINE HYDROCHLORIDE [Suspect]
     Active Substance: CETIRIZINE HYDROCHLORIDE
     Route: 048
  519. CIMZIA [Suspect]
     Active Substance: CERTOLIZUMAB PEGOL
     Indication: Rheumatoid arthritis
     Route: 058
  520. CIMZIA [Suspect]
     Active Substance: CERTOLIZUMAB PEGOL
     Route: 058
  521. CIMZIA [Suspect]
     Active Substance: CERTOLIZUMAB PEGOL
     Route: 065
  522. CIMZIA [Suspect]
     Active Substance: CERTOLIZUMAB PEGOL
     Route: 058
  523. CIMZIA [Suspect]
     Active Substance: CERTOLIZUMAB PEGOL
     Route: 058
  524. CIMZIA [Suspect]
     Active Substance: CERTOLIZUMAB PEGOL
     Route: 065
  525. CIMZIA [Suspect]
     Active Substance: CERTOLIZUMAB PEGOL
     Route: 058
  526. CIMZIA [Suspect]
     Active Substance: CERTOLIZUMAB PEGOL
     Route: 058
  527. CIMZIA [Suspect]
     Active Substance: CERTOLIZUMAB PEGOL
     Route: 058
  528. CIMZIA [Suspect]
     Active Substance: CERTOLIZUMAB PEGOL
     Route: 065
  529. CIMZIA [Suspect]
     Active Substance: CERTOLIZUMAB PEGOL
     Route: 058
  530. CIMZIA [Suspect]
     Active Substance: CERTOLIZUMAB PEGOL
     Route: 058
  531. CIMZIA [Suspect]
     Active Substance: CERTOLIZUMAB PEGOL
     Route: 065
  532. CIMZIA [Suspect]
     Active Substance: CERTOLIZUMAB PEGOL
     Route: 058
  533. DESOXIMETASONE [Suspect]
     Active Substance: DESOXIMETASONE
     Indication: Rheumatoid arthritis
     Route: 065
  534. DESOXIMETASONE [Suspect]
     Active Substance: DESOXIMETASONE
     Route: 065
  535. DESOXIMETASONE [Suspect]
     Active Substance: DESOXIMETASONE
     Route: 065
  536. DESOXIMETASONE [Suspect]
     Active Substance: DESOXIMETASONE
     Route: 065
  537. DESOXIMETASONE [Suspect]
     Active Substance: DESOXIMETASONE
     Route: 065
  538. DESOXIMETASONE [Suspect]
     Active Substance: DESOXIMETASONE
     Route: 065
  539. DESOXIMETASONE [Suspect]
     Active Substance: DESOXIMETASONE
     Route: 048
  540. DESOXIMETASONE [Suspect]
     Active Substance: DESOXIMETASONE
     Route: 048
  541. DESOXIMETASONE [Suspect]
     Active Substance: DESOXIMETASONE
     Route: 048
  542. DESOXIMETASONE [Suspect]
     Active Substance: DESOXIMETASONE
     Route: 048
  543. DESOXIMETASONE [Suspect]
     Active Substance: DESOXIMETASONE
     Route: 048
  544. DESOXIMETASONE [Suspect]
     Active Substance: DESOXIMETASONE
     Route: 065
  545. DESOXIMETASONE [Suspect]
     Active Substance: DESOXIMETASONE
     Route: 065
  546. DESOXIMETASONE [Suspect]
     Active Substance: DESOXIMETASONE
     Route: 048
  547. DESOXIMETASONE [Suspect]
     Active Substance: DESOXIMETASONE
     Route: 065
  548. DESOXIMETASONE [Suspect]
     Active Substance: DESOXIMETASONE
     Route: 065
  549. DESOXIMETASONE [Suspect]
     Active Substance: DESOXIMETASONE
     Route: 065
  550. DESOXIMETASONE [Suspect]
     Active Substance: DESOXIMETASONE
     Route: 065
  551. DESOXIMETASONE [Suspect]
     Active Substance: DESOXIMETASONE
     Route: 065
  552. DESOXIMETASONE [Suspect]
     Active Substance: DESOXIMETASONE
     Route: 065
  553. DESOXIMETASONE [Suspect]
     Active Substance: DESOXIMETASONE
     Route: 065
  554. DESOXIMETASONE [Suspect]
     Active Substance: DESOXIMETASONE
     Route: 048
  555. DESOXIMETASONE [Suspect]
     Active Substance: DESOXIMETASONE
     Route: 048
  556. DESOXIMETASONE [Suspect]
     Active Substance: DESOXIMETASONE
     Route: 048
  557. DESOXIMETASONE [Suspect]
     Active Substance: DESOXIMETASONE
     Route: 048
  558. DESOXIMETASONE [Suspect]
     Active Substance: DESOXIMETASONE
     Route: 048
  559. DESOXIMETASONE [Suspect]
     Active Substance: DESOXIMETASONE
     Route: 048
  560. DESOXIMETASONE [Suspect]
     Active Substance: DESOXIMETASONE
     Route: 065
  561. DESOXIMETASONE [Suspect]
     Active Substance: DESOXIMETASONE
     Route: 048
  562. DESOXIMETASONE [Suspect]
     Active Substance: DESOXIMETASONE
     Route: 065
  563. DESOXIMETASONE [Suspect]
     Active Substance: DESOXIMETASONE
     Route: 048
  564. DESOXIMETASONE [Suspect]
     Active Substance: DESOXIMETASONE
     Route: 065
  565. DOMPERIDONE MALEATE [Suspect]
     Active Substance: DOMPERIDONE MALEATE
     Route: 065
  566. DOMPERIDONE MALEATE [Suspect]
     Active Substance: DOMPERIDONE MALEATE
     Route: 065
  567. FLUMETHASONE [Suspect]
     Active Substance: FLUMETHASONE
     Route: 065
  568. FLUMETHASONE [Suspect]
     Active Substance: FLUMETHASONE
     Route: 065
  569. FLUMETHASONE [Suspect]
     Active Substance: FLUMETHASONE
     Route: 065
  570. FOLIC ACID [Suspect]
     Active Substance: FOLIC ACID
     Indication: Rheumatoid arthritis
     Route: 065
  571. FOLIC ACID [Suspect]
     Active Substance: FOLIC ACID
     Route: 048
  572. FOLIC ACID [Suspect]
     Active Substance: FOLIC ACID
     Route: 065
  573. FOLIC ACID [Suspect]
     Active Substance: FOLIC ACID
     Route: 065
  574. FOLIC ACID [Suspect]
     Active Substance: FOLIC ACID
     Route: 065
  575. FOLIC ACID [Suspect]
     Active Substance: FOLIC ACID
     Route: 065
  576. FOLIC ACID [Suspect]
     Active Substance: FOLIC ACID
     Route: 065
  577. FOLIC ACID [Suspect]
     Active Substance: FOLIC ACID
     Route: 048
  578. FOLIC ACID [Suspect]
     Active Substance: FOLIC ACID
     Route: 065
  579. FOLIC ACID [Suspect]
     Active Substance: FOLIC ACID
     Route: 065
  580. FOLIC ACID [Suspect]
     Active Substance: FOLIC ACID
     Route: 065
  581. FOLIC ACID [Suspect]
     Active Substance: FOLIC ACID
     Route: 065
  582. FOLIC ACID [Suspect]
     Active Substance: FOLIC ACID
     Route: 065
  583. FOLIC ACID [Suspect]
     Active Substance: FOLIC ACID
     Route: 048
  584. FOLIC ACID [Suspect]
     Active Substance: FOLIC ACID
     Route: 065
  585. FOLIC ACID [Suspect]
     Active Substance: FOLIC ACID
     Route: 065
  586. FOLIC ACID [Suspect]
     Active Substance: FOLIC ACID
     Route: 065
  587. FOLIC ACID [Suspect]
     Active Substance: FOLIC ACID
     Route: 048
  588. FOLIC ACID [Suspect]
     Active Substance: FOLIC ACID
     Route: 048
  589. FOLIC ACID [Suspect]
     Active Substance: FOLIC ACID
     Route: 048
  590. FOLIC ACID [Suspect]
     Active Substance: FOLIC ACID
     Route: 065
  591. FOLIC ACID [Suspect]
     Active Substance: FOLIC ACID
     Route: 065
  592. FOLIC ACID [Suspect]
     Active Substance: FOLIC ACID
     Route: 048
  593. FOLIC ACID [Suspect]
     Active Substance: FOLIC ACID
     Route: 065
  594. FOLIC ACID [Suspect]
     Active Substance: FOLIC ACID
     Route: 065
  595. FOLIC ACID [Suspect]
     Active Substance: FOLIC ACID
     Route: 048
  596. FOSAMAX [Suspect]
     Active Substance: ALENDRONATE SODIUM
     Indication: Rheumatoid arthritis
     Route: 016
  597. FOSAMAX [Suspect]
     Active Substance: ALENDRONATE SODIUM
     Route: 016
  598. FOSAMAX [Suspect]
     Active Substance: ALENDRONATE SODIUM
     Indication: Rheumatoid arthritis
     Route: 048
  599. FOSAMAX [Suspect]
     Active Substance: ALENDRONATE SODIUM
     Route: 065
  600. FOSAMAX [Suspect]
     Active Substance: ALENDRONATE SODIUM
     Route: 065
  601. FOSAMAX [Suspect]
     Active Substance: ALENDRONATE SODIUM
     Route: 065
  602. FOSAMAX [Suspect]
     Active Substance: ALENDRONATE SODIUM
     Route: 048
  603. FOSAMAX [Suspect]
     Active Substance: ALENDRONATE SODIUM
     Route: 065
  604. FOSAMAX [Suspect]
     Active Substance: ALENDRONATE SODIUM
     Route: 065
  605. GOLD [Suspect]
     Active Substance: GOLD
     Route: 065
  606. GOLD [Suspect]
     Active Substance: GOLD
     Route: 065
  607. TOPIRAMATE [Suspect]
     Active Substance: TOPIRAMATE
     Indication: Rheumatoid arthritis
     Route: 065
  608. TOPIRAMATE [Suspect]
     Active Substance: TOPIRAMATE
     Route: 065
  609. TOPIRAMATE [Suspect]
     Active Substance: TOPIRAMATE
     Route: 065
  610. TOPIRAMATE [Suspect]
     Active Substance: TOPIRAMATE
     Route: 065
  611. TOPIRAMATE [Suspect]
     Active Substance: TOPIRAMATE
     Route: 065
  612. TOPIRAMATE [Suspect]
     Active Substance: TOPIRAMATE
     Route: 065
  613. TOPIRAMATE [Suspect]
     Active Substance: TOPIRAMATE
     Route: 065
  614. TOPIRAMATE [Suspect]
     Active Substance: TOPIRAMATE
     Route: 065
  615. CELECOXIB [Suspect]
     Active Substance: CELECOXIB
     Indication: Migraine
     Route: 048
  616. CELECOXIB [Suspect]
     Active Substance: CELECOXIB
     Route: 065
  617. DICLOFENAC DIETHYLAMINE [Suspect]
     Active Substance: DICLOFENAC DIETHYLAMINE
     Route: 065
  618. DICLOFENAC [Suspect]
     Active Substance: DICLOFENAC
     Route: 058
  619. DICLOFENAC [Suspect]
     Active Substance: DICLOFENAC
     Route: 065
  620. DICLOFENAC [Suspect]
     Active Substance: DICLOFENAC
     Route: 065
  621. DICLOFENAC [Suspect]
     Active Substance: DICLOFENAC
     Route: 058
  622. HYRIMOZ [Suspect]
     Active Substance: ADALIMUMAB-ADAZ
     Indication: Rheumatoid arthritis
  623. HYRIMOZ [Suspect]
     Active Substance: ADALIMUMAB-ADAZ
  624. HYRIMOZ [Suspect]
     Active Substance: ADALIMUMAB-ADAZ
     Route: 058
  625. FLUMETHASONE PIVALATE [Suspect]
     Active Substance: FLUMETHASONE PIVALATE
     Route: 065
  626. FLUMETHASONE PIVALATE [Suspect]
     Active Substance: FLUMETHASONE PIVALATE
     Route: 065
  627. FLUMETHASONE PIVALATE [Suspect]
     Active Substance: FLUMETHASONE PIVALATE
     Route: 065
  628. FLUMETHASONE PIVALATE [Suspect]
     Active Substance: FLUMETHASONE PIVALATE
     Route: 065
  629. FLUMETHASONE PIVALATE [Suspect]
     Active Substance: FLUMETHASONE PIVALATE
     Route: 048
  630. FLUMETHASONE PIVALATE [Suspect]
     Active Substance: FLUMETHASONE PIVALATE
     Route: 048
  631. FLUMETHASONE PIVALATE [Suspect]
     Active Substance: FLUMETHASONE PIVALATE
     Route: 065
  632. FLUMETHASONE PIVALATE [Suspect]
     Active Substance: FLUMETHASONE PIVALATE
     Route: 065
  633. FLUMETHASONE PIVALATE [Suspect]
     Active Substance: FLUMETHASONE PIVALATE
     Route: 048
  634. FLUMETHASONE PIVALATE [Suspect]
     Active Substance: FLUMETHASONE PIVALATE
     Route: 065
  635. FLUMETHASONE PIVALATE [Suspect]
     Active Substance: FLUMETHASONE PIVALATE
     Route: 065
  636. FLUMETHASONE PIVALATE [Suspect]
     Active Substance: FLUMETHASONE PIVALATE
     Route: 065
  637. GOLD SODIUM THIOMALATE [Suspect]
     Active Substance: GOLD SODIUM THIOMALATE
     Route: 065
  638. GOLD SODIUM THIOMALATE [Suspect]
     Active Substance: GOLD SODIUM THIOMALATE
     Route: 065
  639. GOLD SODIUM THIOMALATE [Suspect]
     Active Substance: GOLD SODIUM THIOMALATE
     Route: 065

REACTIONS (20)
  - Off label use [Fatal]
  - Incorrect product administration duration [Fatal]
  - Intentional product use issue [Fatal]
  - Overdose [Fatal]
  - Underdose [Fatal]
  - Bursitis [Fatal]
  - Pneumonia [Fatal]
  - Fall [Fatal]
  - Finger deformity [Fatal]
  - Folliculitis [Fatal]
  - Gastrooesophageal reflux disease [Fatal]
  - Hepatitis [Fatal]
  - Hypoaesthesia [Fatal]
  - Inflammation [Fatal]
  - Injury [Fatal]
  - Liver function test increased [Fatal]
  - Mobility decreased [Fatal]
  - Muscular weakness [Fatal]
  - Neck pain [Fatal]
  - Pain in extremity [Fatal]
